FAERS Safety Report 6124404-4 (Version None)
Quarter: 2009Q1

REPORT INFORMATION
  Report Type: 
  Country: None (occurrence: None)
  Receive Date: 20090317
  Receipt Date: 20090317
  Transmission Date: 20090719
  Serious: Yes (Other)
  Sender: FDA-Public Use
  Company Number: None

PATIENT
  Age: 59 Year
  Sex: Female
  Weight: 43.0917 kg

DRUGS (1)
  1. ZOLPIDEM [Suspect]
     Indication: INSOMNIA
     Dosage: 2.5 MG DAILY FOR 6 DAYS PO
     Route: 048
     Dates: start: 20090309, end: 20090314

REACTIONS (6)
  - DIZZINESS [None]
  - HANGOVER [None]
  - HEADACHE [None]
  - MYDRIASIS [None]
  - NAUSEA [None]
  - PRODUCT QUALITY ISSUE [None]
